FAERS Safety Report 4838981-4 (Version None)
Quarter: 2005Q4

REPORT INFORMATION
  Report Type: 
  Country: None (occurrence: None)
  Receive Date: 20051031
  Receipt Date: 20050817
  Transmission Date: 20060501
  Serious: No
  Sender: FDA-Public Use
  Company Number: 200516260US

PATIENT
  Age: 54 Year
  Sex: Female
  Weight: 52.2 kg

DRUGS (4)
  1. KETEK [Suspect]
     Indication: TICK-BORNE FEVER
     Dosage: BID PO
     Route: 048
     Dates: start: 20041228, end: 20050730
  2. CHLORDIAZEPOXIDE HCL [Concomitant]
  3. CLIDINIUM BROMIDE (LIBRAX) [Concomitant]
  4. TINIDAZOLE [Concomitant]

REACTIONS (1)
  - PHOTOPSIA [None]
